FAERS Safety Report 22191221 (Version 2)
Quarter: 2023Q2

REPORT INFORMATION
  Report Type: Report from Study
  Country: US (occurrence: None)
  Receive Date: 20230410
  Receipt Date: 20230419
  Transmission Date: 20230722
  Serious: No
  Sender: FDA-Public Use
  Company Number: US-Merck Healthcare KGaA-9395467

PATIENT
  Age: 32 Year
  Sex: Female
  Weight: 79 kg

DRUGS (1)
  1. MAVENCLAD [Suspect]
     Active Substance: CLADRIBINE
     Indication: Multiple sclerosis
     Dosage: YEAR ONE MONTH ONE THERAPY
     Route: 048
     Dates: start: 20230320, end: 20230324

REACTIONS (4)
  - Headache [Recovered/Resolved]
  - Nausea [Unknown]
  - Abdominal discomfort [Recovered/Resolved]
  - Food aversion [Unknown]

NARRATIVE: CASE EVENT DATE: 20230320
